FAERS Safety Report 10251123 (Version 1)
Quarter: 2014Q2

REPORT INFORMATION
  Report Type: Report from Study
  Country: US (occurrence: US)
  Receive Date: 20140620
  Receipt Date: 20140620
  Transmission Date: 20141212
  Serious: Yes (Hospitalization, Other)
  Sender: FDA-Public Use
  Company Number: US-ABBVIE-14P-163-1247010-00

PATIENT
  Age: 45 Year
  Sex: Female
  Weight: 81.72 kg

DRUGS (11)
  1. HUMIRA [Suspect]
     Indication: RHEUMATOID ARTHRITIS
     Dates: start: 2004, end: 2006
  2. HUMIRA [Suspect]
     Dates: start: 2006, end: 2007
  3. HUMIRA [Suspect]
     Dates: start: 2007, end: 20140606
  4. HUMIRA [Suspect]
     Dates: start: 20140606
  5. IMURAN [Suspect]
     Indication: CROHN^S DISEASE
     Dates: start: 20140317, end: 20140503
  6. ZANAFLEX [Concomitant]
     Indication: MUSCLE SPASMS
  7. PRILOSEC [Concomitant]
     Indication: GASTROOESOPHAGEAL REFLUX DISEASE
  8. CELEXA [Concomitant]
     Indication: DEPRESSION
  9. NORCO [Concomitant]
     Indication: ARTHRALGIA
  10. DURAGESIC [Concomitant]
     Indication: ARTHRALGIA
  11. LEVSIN [Concomitant]
     Indication: ABDOMINAL PAIN UPPER

REACTIONS (16)
  - Haematemesis [Recovered/Resolved]
  - Pancreatitis [Recovered/Resolved]
  - Pancreatitis [Recovered/Resolved]
  - Lipase increased [Recovered/Resolved]
  - Diarrhoea [Unknown]
  - Nausea [Recovered/Resolved]
  - Crohn^s disease [Not Recovered/Not Resolved]
  - C-reactive protein increased [Recovered/Resolved]
  - Red blood cell sedimentation rate increased [Recovered/Resolved]
  - Pain [Recovered/Resolved]
  - Drug ineffective [Recovered/Resolved]
  - Weight decreased [Unknown]
  - Diarrhoea [Not Recovered/Not Resolved]
  - Haemoglobin decreased [Unknown]
  - Vomiting [Recovered/Resolved]
  - Pancreatitis [Recovered/Resolved]
